FAERS Safety Report 25683037 (Version 1)
Quarter: 2025Q3

REPORT INFORMATION
  Report Type: Spontaneous
  Country: US (occurrence: US)
  Receive Date: 20250814
  Receipt Date: 20250814
  Transmission Date: 20251020
  Serious: Yes (Other)
  Sender: Alora Pharma
  Company Number: US-OSMOTICA PHARMACEUTICALS-2025ALO02433

PATIENT
  Age: 6 Decade

DRUGS (9)
  1. HYDROMORPHONE HYDROCHLORIDE [Suspect]
     Active Substance: HYDROMORPHONE HYDROCHLORIDE
     Indication: Analgesic therapy
     Route: 037
  2. HYDROMORPHONE HYDROCHLORIDE [Suspect]
     Active Substance: HYDROMORPHONE HYDROCHLORIDE
     Route: 037
     Dates: start: 201204
  3. HYDROMORPHONE HYDROCHLORIDE [Suspect]
     Active Substance: HYDROMORPHONE HYDROCHLORIDE
     Route: 037
     Dates: start: 201511, end: 201603
  4. BUPIVACAINE [Suspect]
     Active Substance: BUPIVACAINE
     Indication: Analgesic therapy
     Route: 037
  5. BUPIVACAINE [Suspect]
     Active Substance: BUPIVACAINE
     Route: 037
     Dates: start: 201204
  6. BUPIVACAINE [Suspect]
     Active Substance: BUPIVACAINE
     Route: 037
     Dates: start: 201511, end: 201603
  7. BUPIVACAINE [Suspect]
     Active Substance: BUPIVACAINE
     Dates: start: 201605
  8. BUPIVACAINE [Suspect]
     Active Substance: BUPIVACAINE
  9. BUPIVACAINE [Suspect]
     Active Substance: BUPIVACAINE
     Dates: end: 2021

REACTIONS (1)
  - Catheter site granuloma [Recovered/Resolved]

NARRATIVE: CASE EVENT DATE: 20151101
